FAERS Safety Report 6489922-8 (Version None)
Quarter: 2009Q4

REPORT INFORMATION
  Report Type: 
  Country: None (occurrence: None)
  Receive Date: 20091211
  Receipt Date: 20091201
  Transmission Date: 20100525
  Serious: Yes (Life-Threatening)
  Sender: FDA-Public Use
  Company Number: NL-WYE-G05027209

PATIENT
  Age: 50 Year
  Sex: Male

DRUGS (3)
  1. EFFEXOR XR [Suspect]
     Indication: DEPRESSION
     Dosage: MAX 150 MG PER DAY
     Dates: start: 20080701, end: 20080101
  2. EFFEXOR XR [Suspect]
     Dosage: MAX 150 MG PER DAY AND THEN TAPERED UNTILL IT WAS WITHDRAWN
     Dates: start: 20080101, end: 20091101
  3. LITHIUM [Concomitant]
     Dosage: UNK DOSE
     Dates: start: 20090601, end: 20090101

REACTIONS (8)
  - CONDITION AGGRAVATED [None]
  - DEPRESSION [None]
  - DEPRESSION SUICIDAL [None]
  - DRUG WITHDRAWAL SYNDROME [None]
  - ERECTILE DYSFUNCTION [None]
  - GENERALISED OEDEMA [None]
  - IMPULSE-CONTROL DISORDER [None]
  - NASAL CONGESTION [None]
